FAERS Safety Report 6545359-4 (Version None)
Quarter: 2010Q1

REPORT INFORMATION
  Report Type: 
  Country: None (occurrence: None)
  Receive Date: 20100121
  Receipt Date: 20100119
  Transmission Date: 20100710
  Serious: Yes (Disabling, Other)
  Sender: FDA-Public Use
  Company Number: US-MERCK-0903USA01781

PATIENT
  Age: 77 Year
  Sex: Female

DRUGS (9)
  1. FOSAMAX [Suspect]
     Indication: OSTEOPOROSIS
     Route: 048
     Dates: start: 19970101
  2. FOSAMAX [Suspect]
     Route: 048
     Dates: start: 20010327, end: 20060501
  3. ALPRAZOLAM [Concomitant]
     Indication: SLEEP DISORDER
     Route: 065
     Dates: start: 19850101
  4. FUROSEMIDE [Concomitant]
     Indication: OEDEMA PERIPHERAL
     Route: 065
     Dates: start: 19850101
  5. FUROSEMIDE [Concomitant]
     Indication: FLUID RETENTION
     Route: 065
     Dates: start: 19850101
  6. FOLIC ACID [Concomitant]
     Indication: ANAEMIA
     Route: 065
  7. HYDROCODONE [Concomitant]
     Indication: OSTEOARTHRITIS
     Route: 065
  8. ASPIRIN [Concomitant]
     Indication: CARDIOVASCULAR EVENT PROPHYLAXIS
     Route: 065
     Dates: end: 20051230
  9. LIPITOR [Concomitant]
     Route: 065

REACTIONS (13)
  - ANXIETY [None]
  - BUNION [None]
  - CATARACT [None]
  - DEPRESSION [None]
  - FOOT DEFORMITY [None]
  - IMPAIRED HEALING [None]
  - MENISCUS LESION [None]
  - MUSCULOSKELETAL DISORDER [None]
  - OSTEONECROSIS [None]
  - PANCREATIC CARCINOMA [None]
  - PARAESTHESIA [None]
  - TOOTH ABSCESS [None]
  - TOOTH DISORDER [None]
